FAERS Safety Report 4808039-9 (Version None)
Quarter: 2005Q4

REPORT INFORMATION
  Report Type: 
  Country: None (occurrence: None)
  Receive Date: 20051024
  Receipt Date: 20050706
  Transmission Date: 20060501
  Serious: Yes (Death, Other)
  Sender: FDA-Public Use
  Company Number: US-MERCK-0507USA01122

PATIENT
  Age: 59 Year
  Sex: Male
  Weight: 114 kg

DRUGS (9)
  1. FLONASE [Concomitant]
     Route: 065
  2. HYDROCODONE BITARTRATE [Concomitant]
     Route: 065
  3. VIOXX [Suspect]
     Indication: ARTHRITIS
     Route: 048
     Dates: start: 19990831, end: 20030626
  4. IMIPRAMINE HYDROCHLORIDE [Concomitant]
     Indication: DEPRESSION
     Route: 065
  5. IMIPRAMINE HYDROCHLORIDE [Concomitant]
     Indication: ANXIETY
     Route: 065
  6. PRAZOSIN-BC [Concomitant]
     Indication: HYPERTENSION
     Route: 065
     Dates: start: 19970101, end: 20030626
  7. DOXAZOSIN MESYLATE [Concomitant]
     Route: 065
  8. TRIAMTERENE [Concomitant]
     Route: 065
  9. ZITHROMAX [Concomitant]
     Route: 065

REACTIONS (4)
  - ARTHROPATHY [None]
  - CARDIAC ARREST [None]
  - CORONARY ARTERY DISEASE [None]
  - MYOCARDIAL INFARCTION [None]
